FAERS Safety Report 20518278 (Version 1)
Quarter: 2022Q1

REPORT INFORMATION
  Report Type: Spontaneous
  Country: US (occurrence: None)
  Receive Date: 20220224
  Receipt Date: 20220224
  Transmission Date: 20220424
  Serious: No
  Sender: FDA-Public Use
  Company Number: None

PATIENT
  Age: 78 Year
  Sex: Male

DRUGS (1)
  1. NINLARO [Suspect]
     Active Substance: IXAZOMIB CITRATE
     Indication: Prostate cancer
     Dosage: OTHER FREQUENCY : DAYS 1, 8, 15;?
     Route: 048
     Dates: start: 20211027

REACTIONS (2)
  - Platelet count decreased [None]
  - Therapy interrupted [None]
